FAERS Safety Report 8015540-6 (Version None)
Quarter: 2011Q4

REPORT INFORMATION
  Report Type: 
  Country: None (occurrence: None)
  Receive Date: 20111226
  Receipt Date: 20111209
  Transmission Date: 20120403
  Serious: Yes (Other)
  Sender: FDA-Public Use
  Company Number: 2011-4930

PATIENT
  Age: 50 Year
  Sex: Female

DRUGS (5)
  1. DYSPORT [Suspect]
     Indication: DYSTONIA
     Dosage: 120 UNITS (120 UNITS,SINGLE CYCLE),PARENTERAL
     Route: 051
  2. ASCAL (ACETYLSALICYLATE CALCIUM) [Concomitant]
  3. INPRATROPIUM (IPRATROPIUM) [Concomitant]
  4. SOTALOL HCL [Concomitant]
  5. TAMOXIFEN CITRATE [Concomitant]

REACTIONS (3)
  - BREAST PAIN [None]
  - CHILLS [None]
  - PYREXIA [None]
